FAERS Safety Report 6183370-6 (Version None)
Quarter: 2009Q2

REPORT INFORMATION
  Report Type: 
  Country: None (occurrence: None)
  Receive Date: 20090506
  Receipt Date: 20090415
  Transmission Date: 20091009
  Serious: Yes (Other)
  Sender: FDA-Public Use
  Company Number: PAR_02962_2009

PATIENT
  Sex: Female
  Weight: 101 kg

DRUGS (15)
  1. IBUPROFEN [Suspect]
     Indication: DRUG USE FOR UNKNOWN INDICATION
     Dosage: (600 MG  TID), (600 MG TID)
     Dates: start: 20090213, end: 20090222
  2. IBUPROFEN [Suspect]
     Indication: DRUG USE FOR UNKNOWN INDICATION
     Dosage: (600 MG  TID), (600 MG TID)
     Dates: start: 20090224, end: 20090226
  3. RIVAROXABAN [Suspect]
     Indication: THROMBOSIS PROPHYLAXIS
     Dosage: (10 MG ORAL)
     Route: 048
     Dates: start: 20090212, end: 20090226
  4. CEFAZOLIN [Concomitant]
  5. CLEXANE [Concomitant]
  6. TUTOFUSIN [Concomitant]
  7. PANTOZOL /01263202/ [Concomitant]
  8. LEVOTHYROXINE SODIUM [Concomitant]
  9. ESSIDRIX [Concomitant]
  10. CAPTOHEXAL [Concomitant]
  11. CETIRIZINE [Concomitant]
  12. NOVALGIN /06276704/ [Concomitant]
  13. AMBROXOL [Concomitant]
  14. VALORON /00205402/ [Concomitant]
  15. HEPARIN [Concomitant]

REACTIONS (2)
  - POST PROCEDURAL HAEMATOMA [None]
  - WOUND DEHISCENCE [None]
